FAERS Safety Report 7789778-7 (Version None)
Quarter: 2011Q3

REPORT INFORMATION
  Report Type: 
  Country: None (occurrence: None)
  Receive Date: 20110930
  Receipt Date: 20110516
  Transmission Date: 20111222
  Serious: No
  Sender: FDA-Public Use
  Company Number: US-ASTRAZENECA-2011SE18332

PATIENT
  Age: 56 Year
  Sex: Female

DRUGS (3)
  1. ARIMIDEX [Suspect]
     Route: 048
  2. NEXIUM [Suspect]
     Route: 048
  3. SYMBICORT [Suspect]
     Route: 055

REACTIONS (2)
  - LIMB DISCOMFORT [None]
  - CHRONIC OBSTRUCTIVE PULMONARY DISEASE [None]
